FAERS Safety Report 14628199 (Version 1)
Quarter: 2018Q1

REPORT INFORMATION
  Report Type: Spontaneous
  Country: US (occurrence: US)
  Receive Date: 20180312
  Receipt Date: 20180312
  Transmission Date: 20180509
  Serious: No
  Sender: FDA-Public Use
  Company Number: US-ALLERGAN-1748445US

PATIENT
  Age: 69 Year
  Sex: Female
  Weight: 74.83 kg

DRUGS (3)
  1. ESTRACE [Suspect]
     Active Substance: ESTRADIOL
     Indication: VULVOVAGINAL DRYNESS
     Dosage: UNK, BI-WEEKLY
     Route: 067
     Dates: start: 201707, end: 201708
  2. PHENTERMINE. [Concomitant]
     Active Substance: PHENTERMINE
     Indication: OBESITY
     Dosage: UNK
     Route: 048
  3. ESTRACE [Suspect]
     Active Substance: ESTRADIOL
     Indication: ATROPHIC VULVOVAGINITIS
     Dosage: UNK, BI-WEEKLY
     Route: 067
     Dates: start: 201708, end: 20170824

REACTIONS (6)
  - Vulvovaginal pruritus [Recovered/Resolved]
  - Dysuria [Recovered/Resolved]
  - Incorrect dose administered [Unknown]
  - Vaginal disorder [Unknown]
  - Fungal infection [Recovered/Resolved]
  - Vulvovaginal erythema [Recovered/Resolved]

NARRATIVE: CASE EVENT DATE: 20170712
